FAERS Safety Report 19482053 (Version 1)
Quarter: 2021Q2

REPORT INFORMATION
  Report Type: Spontaneous
  Country: US (occurrence: US)
  Receive Date: 20210630
  Receipt Date: 20210630
  Transmission Date: 20210717
  Serious: Yes (Death)
  Sender: FDA-Public Use
  Company Number: None

PATIENT
  Age: 72 Year
  Sex: Female

DRUGS (26)
  1. FERROUS FUMARATE [Concomitant]
     Active Substance: FERROUS FUMARATE
  2. TRAMADOL. [Concomitant]
     Active Substance: TRAMADOL
  3. PRAMIPEXOLE. [Concomitant]
     Active Substance: PRAMIPEXOLE
  4. SPIRONOLACTONE. [Concomitant]
     Active Substance: SPIRONOLACTONE
  5. ALPRAZOLAM. [Concomitant]
     Active Substance: ALPRAZOLAM
  6. INFLAMMATORY [Concomitant]
  7. INTERSTITIAL LUNG DISEASE [Concomitant]
  8. GERD [Concomitant]
  9. OSTEOPOROSIS [Concomitant]
  10. TADALAFIL. [Concomitant]
     Active Substance: TADALAFIL
  11. OSTEOARTHRITIS OF LEFT KNEE AND RIGHT HIP [Concomitant]
  12. TORSEMIDE. [Concomitant]
     Active Substance: TORSEMIDE
  13. HTN [Concomitant]
  14. POLYARTHRITIS [Concomitant]
  15. METOLAZONE. [Concomitant]
     Active Substance: METOLAZONE
  16. FLONASE [Concomitant]
     Active Substance: FLUTICASONE PROPIONATE
  17. TYVASO [Concomitant]
     Active Substance: TREPROSTINIL
  18. VASCULITIS [Concomitant]
  19. AMBRISENTAN [Suspect]
     Active Substance: AMBRISENTAN
  20. POTASSIUM CHLORIDE. [Concomitant]
     Active Substance: POTASSIUM CHLORIDE
  21. TRAZODONE [Concomitant]
     Active Substance: TRAZODONE HYDROCHLORIDE
  22. HEART FAILURE [Concomitant]
  23. HYPERLIPIDEMIA [Concomitant]
  24. OMEPRAZOLE. [Concomitant]
     Active Substance: OMEPRAZOLE
  25. HYPOTHYROIDISM [Concomitant]
  26. IRON DEFICIENCY ANEMIA [Concomitant]

REACTIONS (11)
  - Hypotension [None]
  - Cardiac failure congestive [None]
  - Acute myocardial infarction [None]
  - Hypovolaemic shock [None]
  - Arteriovenous malformation [None]
  - Sepsis [None]
  - Haematemesis [None]
  - Atrial fibrillation [None]
  - Upper gastrointestinal haemorrhage [None]
  - Tachycardia [None]
  - Refusal of treatment by patient [None]

NARRATIVE: CASE EVENT DATE: 20210601
